FAERS Safety Report 9746987 (Version 1)
Quarter: 2013Q4

REPORT INFORMATION
  Report Type: Spontaneous
  Country: RU (occurrence: RU)
  Receive Date: 20131211
  Receipt Date: 20131211
  Transmission Date: 20140711
  Serious: Yes (Other)
  Sender: FDA-Public Use
  Company Number: RU-MYLANLABS-2013S1027183

PATIENT
  Age: 51 Year
  Sex: Male

DRUGS (1)
  1. ALLOPURINOL [Suspect]
     Indication: GOUTY TOPHUS
     Route: 065

REACTIONS (4)
  - Gouty arthritis [Recovered/Resolved]
  - Arthritis [Recovered/Resolved]
  - Rash [Unknown]
  - Pruritus [Unknown]
